FAERS Safety Report 4355652-1 (Version None)
Quarter: 2004Q2

REPORT INFORMATION
  Report Type: 
  Country: None (occurrence: None)
  Receive Date: 20040510
  Receipt Date: 20040428
  Transmission Date: 20050107
  Serious: Yes (Hospitalization)
  Sender: FDA-Public Use
  Company Number: FR-BRISTOL-MYERS SQUIBB COMPANY-12574331

PATIENT
  Age: 72 Year
  Sex: Female

DRUGS (6)
  1. ECAZIDE TABS 50 MG/25 MG [Suspect]
     Dosage: 50MG/25MG TABLET; 1 TABLET DAILY
     Route: 048
  2. REVIA [Suspect]
     Route: 048
  3. RIVOTRIL [Suspect]
     Dosage: 4 TABLETS PER DAY
     Route: 048
     Dates: end: 20040102
  4. CELEBREX [Suspect]
     Dosage: 200 VS 400MG DAY
     Route: 048
     Dates: start: 20030715
  5. TOPALGIC [Suspect]
     Dosage: 200MG VERSUS 400MG DAILY
     Route: 048
     Dates: start: 20031218, end: 20040102
  6. ZOLOFT [Suspect]
     Route: 048
     Dates: start: 20031226

REACTIONS (6)
  - ANOREXIA [None]
  - BALANCE DISORDER [None]
  - CONFUSIONAL STATE [None]
  - DEPRESSION [None]
  - PAIN IN EXTREMITY [None]
  - SOMNOLENCE [None]
